FAERS Safety Report 7157333-8 (Version None)
Quarter: 2010Q4

REPORT INFORMATION
  Report Type: 
  Country: None (occurrence: None)
  Receive Date: 20101214
  Receipt Date: 20101208
  Transmission Date: 20110411
  Serious: No
  Sender: FDA-Public Use
  Company Number: US-PFIZER INC-2010167984

PATIENT
  Sex: Female

DRUGS (2)
  1. NEURONTIN [Suspect]
     Indication: NEURALGIA
     Dosage: 400 MG, 3X/DAY
     Route: 048
     Dates: start: 20080101
  2. NEURONTIN [Suspect]
     Dosage: 800 MG, 4X/DAY

REACTIONS (1)
  - PAIN [None]
